FAERS Safety Report 6446410-2 (Version None)
Quarter: 2009Q4

REPORT INFORMATION
  Report Type: 
  Country: None (occurrence: None)
  Receive Date: 20091119
  Receipt Date: 20091105
  Transmission Date: 20100525
  Serious: Yes (Other)
  Sender: FDA-Public Use
  Company Number: PHHY2009DE48852

PATIENT
  Sex: Female

DRUGS (1)
  1. PROVAS MAXX [Suspect]
     Dosage: 0.5 DF, QD
     Route: 048
     Dates: start: 20090901

REACTIONS (5)
  - COLITIS [None]
  - DIARRHOEA [None]
  - ECZEMA [None]
  - LIVER DISORDER [None]
  - PRURITUS [None]
